FAERS Safety Report 12337796 (Version 1)
Quarter: 2016Q2

REPORT INFORMATION
  Report Type: Spontaneous
  Country: JP (occurrence: JP)
  Receive Date: 20160505
  Receipt Date: 20160505
  Transmission Date: 20160815
  Serious: Yes (Hospitalization)
  Sender: FDA-Public Use
  Company Number: JP-BAYER-2016-082262

PATIENT
  Age: 76 Year
  Sex: Female
  Weight: 46 kg

DRUGS (2)
  1. NEXAVAR [Suspect]
     Active Substance: SORAFENIB
     Indication: RENAL CELL CARCINOMA
     Dosage: DAILY DOSE 600 MG
     Route: 048
     Dates: start: 20100515
  2. VESICARE [Concomitant]
     Active Substance: SOLIFENACIN SUCCINATE
     Dosage: DAILY DOSE 5 MG
     Route: 048

REACTIONS (5)
  - Cerebral infarction [Recovered/Resolved with Sequelae]
  - Muscular weakness [Recovered/Resolved with Sequelae]
  - Vomiting [Recovered/Resolved with Sequelae]
  - Hypoaesthesia [Recovered/Resolved with Sequelae]
  - Paralysis [Recovered/Resolved with Sequelae]

NARRATIVE: CASE EVENT DATE: 20110219
